FAERS Safety Report 4870546-0 (Version None)
Quarter: 2005Q4

REPORT INFORMATION
  Report Type: 
  Country: None (occurrence: None)
  Receive Date: 20051228
  Receipt Date: 20051214
  Transmission Date: 20060501
  Serious: Yes (Hospitalization)
  Sender: FDA-Public Use
  Company Number: 2005-BP-21427RO

PATIENT
  Age: 52 Year
  Sex: Female
  Weight: 77.1 kg

DRUGS (5)
  1. LITHIUM CARBONATE [Suspect]
     Indication: BIPOLAR DISORDER
     Dosage: 900 MG (300 MG), PO
     Route: 048
  2. KLONOPIN [Concomitant]
  3. NEURONTIN [Concomitant]
  4. CATAPRES [Concomitant]
  5. RISPERDAL [Concomitant]

REACTIONS (5)
  - CHOLECYSTECTOMY [None]
  - DECREASED APPETITE [None]
  - MALAISE [None]
  - PANCREATITIS [None]
  - TREMOR [None]
